FAERS Safety Report 9124964 (Version 1)
Quarter: 2013Q1

REPORT INFORMATION
  Report Type: Spontaneous
  Country: US (occurrence: US)
  Receive Date: 20130227
  Receipt Date: 20130227
  Transmission Date: 20140127
  Serious: No
  Sender: FDA-Public Use
  Company Number: US-PFIZER INC-2013070375

PATIENT
  Sex: Female

DRUGS (2)
  1. LYRICA [Suspect]
     Indication: FIBROMYALGIA
     Dosage: 50 MG, 1X/DAY
     Route: 048
     Dates: start: 20130222
  2. NAPROXEN [Concomitant]
     Dosage: UNK

REACTIONS (3)
  - Sedation [Recovered/Resolved]
  - Feeling abnormal [Recovered/Resolved]
  - Wrong technique in drug usage process [Unknown]
